FAERS Safety Report 4589346-4 (Version None)
Quarter: 2005Q1

REPORT INFORMATION
  Report Type: 
  Country: None (occurrence: None)
  Receive Date: 20050216
  Receipt Date: 20050216
  Transmission Date: 20050727
  Serious: Yes (Hospitalization)
  Sender: FDA-Public Use
  Company Number: None

PATIENT
  Age: 60 Year
  Sex: Female
  Weight: 72.5755 kg

DRUGS (1)
  1. TEQUIN [Suspect]
     Indication: TENDONITIS
     Dosage: 1 A DAY
     Dates: start: 20050121, end: 20050203

REACTIONS (1)
  - TENDONITIS [None]
